FAERS Safety Report 8584018-3 (Version None)
Quarter: 2012Q3

REPORT INFORMATION
  Report Type: 
  Country: None (occurrence: None)
  Receive Date: 20120810
  Receipt Date: 20120725
  Transmission Date: 20120928
  Serious: No
  Sender: FDA-Public Use
  Company Number: US-009507513-1207USA012547

PATIENT

DRUGS (4)
  1. WARFARIN SODIUM [Concomitant]
  2. VITAMINS (UNSPECIFIED) [Concomitant]
  3. VYTORIN [Suspect]
     Dosage: 1 DF, QD
     Route: 048
     Dates: start: 20030101
  4. IBUPROFEN [Concomitant]

REACTIONS (6)
  - FATIGUE [None]
  - ERYTHEMA [None]
  - DRUG DOSE OMISSION [None]
  - INFLAMMATION [None]
  - MYALGIA [None]
  - ARTHRITIS [None]
